FAERS Safety Report 25396436 (Version 1)
Quarter: 2025Q2

REPORT INFORMATION
  Report Type: Report from Study
  Country: CO (occurrence: CO)
  Receive Date: 20250604
  Receipt Date: 20250604
  Transmission Date: 20250717
  Serious: Yes (Hospitalization)
  Sender: PUMA
  Company Number: CO-OEPI8P-1557

PATIENT

DRUGS (4)
  1. NERLYNX [Suspect]
     Active Substance: NERATINIB
     Indication: Breast cancer
     Dosage: 200 MG, DAILY
     Route: 048
     Dates: start: 20241106
  2. CAPECITABINE [Concomitant]
     Active Substance: CAPECITABINE
     Indication: Breast cancer
     Dosage: 1000 MG EVERY 12 H
     Route: 048
     Dates: start: 20241106
  3. ONDANSETRON [Concomitant]
     Active Substance: ONDANSETRON
     Indication: Vomiting
     Dosage: 8 MG EVERY 8 H
     Route: 048
     Dates: start: 20250410
  4. LOPERAMIDE [Concomitant]
     Active Substance: LOPERAMIDE
     Indication: Diarrhoea
     Dosage: 2 MG EVERY 8 H
     Route: 048
     Dates: start: 20250410

REACTIONS (2)
  - Fall [Recovered/Resolved]
  - Haematemesis [Recovering/Resolving]

NARRATIVE: CASE EVENT DATE: 20250419
